FAERS Safety Report 6104524-0 (Version None)
Quarter: 2009Q1

REPORT INFORMATION
  Report Type: 
  Country: None (occurrence: None)
  Receive Date: 20090227
  Receipt Date: 20080110
  Transmission Date: 20090719
  Serious: Yes (Life-Threatening, Hospitalization)
  Sender: FDA-Public Use
  Company Number: RB-7820-2007

PATIENT
  Age: 39 Year
  Sex: Female

DRUGS (1)
  1. SUBOXONE [Suspect]
     Indication: DRUG DEPENDENCE
     Dosage: 3 MG  2MG IN AM, 1 MG IN PM SUBLINGUAL
     Route: 060

REACTIONS (2)
  - ADRENAL INSUFFICIENCY [None]
  - OVERDOSE [None]
